FAERS Safety Report 16697525 (Version 2)
Quarter: 2019Q3

REPORT INFORMATION
  Report Type: Spontaneous
  Country: PK (occurrence: PK)
  Receive Date: 20190813
  Receipt Date: 20190821
  Transmission Date: 20191004
  Serious: Yes (Other)
  Sender: FDA-Public Use
  Company Number: PHHY2019PK182924

PATIENT
  Age: 22 Year
  Sex: Female

DRUGS (2)
  1. BENZATHINE BENZYLPENICILLIN [Suspect]
     Active Substance: PENICILLIN G BENZATHINE
     Indication: RHEUMATIC FEVER
     Dosage: UNK
     Route: 065
  2. METFORMIN [Suspect]
     Active Substance: METFORMIN HYDROCHLORIDE
     Indication: POLYCYSTIC OVARIES
     Dosage: 500 MG, BID
     Route: 065

REACTIONS (13)
  - Migraine [Unknown]
  - Neuralgia [Unknown]
  - Pharyngitis [Unknown]
  - Cluster headache [Unknown]
  - Type IV hypersensitivity reaction [Unknown]
  - Hyperuricaemia [Unknown]
  - Breast tenderness [Unknown]
  - Axillary pain [Unknown]
  - Mood altered [Unknown]
  - Palpitations [Unknown]
  - Product use in unapproved indication [Unknown]
  - Rheumatic fever [Unknown]
  - Arthralgia [Unknown]
